FAERS Safety Report 25752209 (Version 1)
Quarter: 2025Q3

REPORT INFORMATION
  Report Type: Spontaneous
  Country: US (occurrence: None)
  Receive Date: 20250902
  Receipt Date: 20250902
  Transmission Date: 20251021
  Serious: Yes (Other)
  Sender: FDA-CTU
  Company Number: None

PATIENT
  Age: 38 Year
  Sex: Female
  Weight: 68.4 kg

DRUGS (3)
  1. ZEPBOUND [Suspect]
     Active Substance: TIRZEPATIDE
     Indication: Blood glucose
     Dates: start: 20250724, end: 20250815
  2. ZEPBOUND [Suspect]
     Active Substance: TIRZEPATIDE
     Indication: Weight decreased
  3. liothyronine trintellix [Concomitant]

REACTIONS (5)
  - Insurance issue [None]
  - Dry eye [None]
  - Corneal disorder [None]
  - Therapy cessation [None]
  - Vision blurred [None]

NARRATIVE: CASE EVENT DATE: 20250814
